FAERS Safety Report 5880852-9 (Version None)
Quarter: 2008Q3

REPORT INFORMATION
  Report Type: 
  Country: None (occurrence: None)
  Receive Date: 20080912
  Receipt Date: 20080611
  Transmission Date: 20090109
  Serious: No
  Sender: FDA-Public Use
  Company Number: US-ABBOTT-08P-163-0456733-00

PATIENT
  Sex: Female
  Weight: 47.67 kg

DRUGS (14)
  1. HUMIRA [Suspect]
     Indication: PSORIASIS
     Dosage: 80 MG INITIAL DOSE
     Route: 058
     Dates: start: 20080608, end: 20080608
  2. HUMIRA [Suspect]
     Dosage: 40 MG ON ONE WEEK
     Route: 058
  3. HUMIRA [Suspect]
     Route: 058
  4. FUROSEMIDE [Concomitant]
     Indication: FLUID RETENTION
     Route: 048
  5. DIPHENHYDRAMINE HYDROCHLORIDE [Concomitant]
     Indication: DRUG USE FOR UNKNOWN INDICATION
     Route: 048
  6. RALOXIFENE HYDROCHLORIDE [Concomitant]
     Indication: HORMONE REPLACEMENT THERAPY
     Route: 048
  7. SULFASALAZINE [Concomitant]
     Indication: INFLAMMATION
     Route: 048
  8. LEVOTHYROXINE SODIUM [Concomitant]
     Indication: HYPOTHYROIDISM
     Route: 048
  9. MECLAREX [Concomitant]
     Indication: DRUG USE FOR UNKNOWN INDICATION
     Route: 048
  10. ESOMEPRAZOLE MAGNESIUM [Concomitant]
     Indication: GASTROOESOPHAGEAL REFLUX DISEASE
     Route: 048
  11. OMEPRAZOLE [Concomitant]
     Indication: GASTROOESOPHAGEAL REFLUX DISEASE
     Route: 048
  12. LORAZEPAM [Concomitant]
     Indication: ANXIETY
     Route: 048
  13. TRIAMCINOLONE ACETONIDE [Concomitant]
     Indication: PSORIASIS
     Route: 061
     Dates: start: 20080301
  14. CALCIPOTRIENE [Concomitant]
     Indication: PSORIASIS
     Route: 061
     Dates: start: 20080301

REACTIONS (1)
  - ACCIDENTAL EXPOSURE [None]
